FAERS Safety Report 7357151-1 (Version None)
Quarter: 2011Q1

REPORT INFORMATION
  Report Type: 
  Country: None (occurrence: None)
  Receive Date: 20110308
  Receipt Date: 20110222
  Transmission Date: 20110831
  Serious: Yes (Disabling)
  Sender: FDA-Public Use
  Company Number: 028020

PATIENT
  Age: 25 Year
  Sex: Male

DRUGS (4)
  1. VIMPAT [Suspect]
     Dosage: 25 MG QD
  2. LAMOTRIGINE [Concomitant]
  3. FRISIUM [Concomitant]
  4. ORFIRIL /00228501/ [Concomitant]

REACTIONS (2)
  - MYDRIASIS [None]
  - VISUAL IMPAIRMENT [None]
